FAERS Safety Report 12969006 (Version 1)
Quarter: 2016Q4

REPORT INFORMATION
  Report Type: Spontaneous
  Country: US (occurrence: US)
  Receive Date: 20161123
  Receipt Date: 20161123
  Transmission Date: 20170207
  Serious: No
  Sender: FDA-Public Use
  Company Number: US-BAYER-2016-223573

PATIENT
  Age: 69 Year
  Sex: Female

DRUGS (1)
  1. BETASERON [Suspect]
     Active Substance: INTERFERON BETA-1B
     Indication: MULTIPLE SCLEROSIS
     Dosage: UNK

REACTIONS (4)
  - Food allergy [None]
  - Chills [None]
  - Drug hypersensitivity [None]
  - Feeling hot [None]

NARRATIVE: CASE EVENT DATE: 201610
